FAERS Safety Report 20776998 (Version 1)
Quarter: 2022Q2

REPORT INFORMATION
  Report Type: Spontaneous
  Country: US (occurrence: US)
  Receive Date: 20220502
  Receipt Date: 20220502
  Transmission Date: 20220721
  Serious: Yes (Other)
  Sender: FDA-Public Use
  Company Number: US-CELLTRION INC.-2022US005462

PATIENT

DRUGS (3)
  1. TRUXIMA [Suspect]
     Active Substance: RITUXIMAB-ABBS
     Indication: Haematuria
     Dosage: 1000 MG Q 4 MONTHS
     Dates: start: 20210223
  2. TRUXIMA [Suspect]
     Active Substance: RITUXIMAB-ABBS
     Indication: Glomerulonephritis membranous
     Dosage: 1000 MG Q 4 MONTHS
     Dates: start: 20220426
  3. TRUXIMA [Suspect]
     Active Substance: RITUXIMAB-ABBS
     Indication: Nephrotic syndrome

REACTIONS (4)
  - Nephrotic syndrome [Unknown]
  - Glomerulonephritis membranous [Unknown]
  - Haematuria [Unknown]
  - Off label use [Unknown]
